FAERS Safety Report 9385634 (Version 3)
Quarter: 2013Q3

REPORT INFORMATION
  Report Type: Spontaneous
  Country: JP (occurrence: None)
  Receive Date: 20130701
  Receipt Date: 20130725
  Transmission Date: 20140515
  Serious: Yes (Life-Threatening)
  Sender: FDA-Public Use
  Company Number: TCI2013A03712

PATIENT
  Age: 77 Year
  Sex: Male

DRUGS (5)
  1. ACTOS [Suspect]
     Indication: TYPE 2 DIABETES MELLITUS
     Route: 048
     Dates: start: 20090515, end: 20121215
  2. ALPHA GLUCOSIDASE INHIBITORS [Concomitant]
  3. ORAL ANTIDIABETICS [Concomitant]
  4. SULFONAMIDES, UREA DERIVATIVES [Concomitant]
  5. BIGUANIDES [Concomitant]

REACTIONS (1)
  - Atrial fibrillation [None]
